FAERS Safety Report 19515792 (Version 1)
Quarter: 2021Q3

REPORT INFORMATION
  Report Type: Spontaneous
  Country: US (occurrence: US)
  Receive Date: 20210709
  Receipt Date: 20210709
  Transmission Date: 20211014
  Serious: No
  Sender: FDA-Public Use
  Company Number: US-ASTELLAS-2020US027162

PATIENT
  Sex: Male

DRUGS (1)
  1. MYRBETRIQ [Suspect]
     Active Substance: MIRABEGRON
     Indication: PRODUCT USED FOR UNKNOWN INDICATION
     Route: 065
     Dates: end: 202008

REACTIONS (21)
  - Diarrhoea [Unknown]
  - Constipation [Unknown]
  - Incontinence [Unknown]
  - Tachycardia [Unknown]
  - Blood pressure decreased [Unknown]
  - Memory impairment [Unknown]
  - Balance disorder [Unknown]
  - Dyspnoea [Unknown]
  - Chest pain [Unknown]
  - Headache [Unknown]
  - Dry mouth [Unknown]
  - Fatigue [Unknown]
  - Anxiety [Unknown]
  - Abdominal pain [Unknown]
  - Respiratory disorder [Unknown]
  - Back pain [Unknown]
  - Arthralgia [Unknown]
  - Heart rate decreased [Unknown]
  - Pelvic pain [Unknown]
  - Confusional state [Unknown]
  - Sensitive skin [Unknown]
